FAERS Safety Report 10207804 (Version 1)
Quarter: 2014Q2

REPORT INFORMATION
  Report Type: Spontaneous
  Country: US (occurrence: US)
  Receive Date: 20140530
  Receipt Date: 20140530
  Transmission Date: 20141212
  Serious: No
  Sender: FDA-Public Use
  Company Number: US-GLAXOSMITHKLINE-A1059842A

PATIENT
  Age: 79 Year
  Sex: Female

DRUGS (2)
  1. VENTOLIN [Suspect]
     Indication: COUGH
     Route: 055
  2. BLOOD PRESSURE MEDICATION [Concomitant]

REACTIONS (2)
  - Obstructive airways disorder [Unknown]
  - Product quality issue [Unknown]
